FAERS Safety Report 23219673 (Version 2)
Quarter: 2023Q4

REPORT INFORMATION
  Report Type: Spontaneous
  Country: US (occurrence: US)
  Receive Date: 20231122
  Receipt Date: 20231218
  Transmission Date: 20240110
  Serious: No
  Sender: FDA-Public Use
  Company Number: US-BAUSCHBL-2023BNL011655

PATIENT
  Age: 70 Year
  Sex: Female
  Weight: 43.09 kg

DRUGS (1)
  1. LATANOPROST [Suspect]
     Active Substance: LATANOPROST
     Indication: Glaucoma
     Route: 065
     Dates: start: 202302

REACTIONS (1)
  - Eyelid disorder [Recovered/Resolved]

NARRATIVE: CASE EVENT DATE: 20231101
